FAERS Safety Report 8809547 (Version 5)
Quarter: 2013Q1

REPORT INFORMATION
  Report Type: Spontaneous
  Country: US (occurrence: US)
  Receive Date: 20120926
  Receipt Date: 20130218
  Transmission Date: 20140127
  Serious: Yes (Other)
  Sender: FDA-Public Use
  Company Number: US-ASTRAZENECA-2012SE74080

PATIENT
  Age: 43 Year
  Sex: Female

DRUGS (5)
  1. NEXIUM [Suspect]
     Indication: GASTROOESOPHAGEAL REFLUX DISEASE
     Route: 048
  2. NEXIUM [Suspect]
     Indication: GASTROOESOPHAGEAL REFLUX DISEASE
     Route: 048
  3. PRILOSEC [Suspect]
     Indication: GASTROOESOPHAGEAL REFLUX DISEASE
     Route: 048
  4. PRILOSEC OTC [Suspect]
     Route: 048
  5. ZANTAC [Concomitant]

REACTIONS (19)
  - Oesophageal perforation [Unknown]
  - Gastrooesophageal reflux disease [Unknown]
  - Pain [Unknown]
  - Disease recurrence [Unknown]
  - Osteoporosis [Unknown]
  - Blood pressure increased [Unknown]
  - Dyspnoea [Unknown]
  - Asthenia [Unknown]
  - Oropharyngeal pain [Unknown]
  - Erosive oesophagitis [Unknown]
  - Haemoptysis [Unknown]
  - Oesophageal disorder [Unknown]
  - Adverse event [Unknown]
  - Dizziness [Unknown]
  - Arthralgia [Unknown]
  - Malaise [Unknown]
  - Off label use [Unknown]
  - Drug dose omission [Unknown]
  - Drug ineffective [Unknown]
